FAERS Safety Report 23862863 (Version 1)
Quarter: 2024Q2

REPORT INFORMATION
  Report Type: Spontaneous
  Country: US (occurrence: None)
  Receive Date: 20240515
  Receipt Date: 20240515
  Transmission Date: 20240716
  Serious: Yes (Disabling)
  Sender: FDA-Public Use
  Company Number: None

PATIENT
  Age: 43 Year
  Sex: Female
  Weight: 74.25 kg

DRUGS (3)
  1. NITROFURANTOIN [Suspect]
     Active Substance: NITROFURANTOIN
     Indication: Urinary tract disorder
     Dosage: 14 CAPSULES TWICE A DAY ORAL
     Route: 048
     Dates: start: 20240428, end: 20240501
  2. ELURYNG [Concomitant]
     Active Substance: ETHINYL ESTRADIOL\ETONOGESTREL
  3. Vitamin C gummy [Concomitant]

REACTIONS (22)
  - Nausea [None]
  - Vomiting [None]
  - Pyrexia [None]
  - Pain [None]
  - Arthralgia [None]
  - Headache [None]
  - Chills [None]
  - Hypoaesthesia [None]
  - Paraesthesia [None]
  - Headache [None]
  - Peripheral swelling [None]
  - Pain in extremity [None]
  - Arthralgia [None]
  - Blood bilirubin increased [None]
  - Alanine aminotransferase increased [None]
  - Aspartate aminotransferase increased [None]
  - Blood alkaline phosphatase increased [None]
  - Monocyte count increased [None]
  - Fibrin D dimer increased [None]
  - Pleural effusion [None]
  - Hepatomegaly [None]
  - Ceruloplasmin increased [None]

NARRATIVE: CASE EVENT DATE: 20240429
